FAERS Safety Report 25002466 (Version 1)
Quarter: 2025Q1

REPORT INFORMATION
  Report Type: Report from Study
  Country: US (occurrence: None)
  Receive Date: 20250224
  Receipt Date: 20250224
  Transmission Date: 20250408
  Serious: Yes (Death, Hospitalization, Other)
  Sender: NODEN PHARMA
  Company Number: US-Noden Pharma DAC-NOD202502-000012

PATIENT
  Age: 42 Year
  Sex: Male

DRUGS (8)
  1. COCAINE HYDROCHLORIDE [Suspect]
     Active Substance: COCAINE HYDROCHLORIDE
     Indication: Product used for unknown indication
     Route: 048
  2. COCAINE HYDROCHLORIDE [Suspect]
     Active Substance: COCAINE HYDROCHLORIDE
     Route: 065
  3. ACETAMINOPHEN\HYDROCODONE [Suspect]
     Active Substance: ACETAMINOPHEN\HYDROCODONE
     Indication: Product used for unknown indication
     Route: 048
  4. ACETAMINOPHEN\HYDROCODONE [Suspect]
     Active Substance: ACETAMINOPHEN\HYDROCODONE
     Route: 065
  5. ALPRAZOLAM [Suspect]
     Active Substance: ALPRAZOLAM
     Indication: Product used for unknown indication
     Route: 048
  6. ALPRAZOLAM [Suspect]
     Active Substance: ALPRAZOLAM
     Route: 065
  7. ALCOHOL [Suspect]
     Active Substance: ALCOHOL
     Indication: Product used for unknown indication
     Route: 048
  8. ALCOHOL [Suspect]
     Active Substance: ALCOHOL
     Route: 065

REACTIONS (4)
  - Suspected suicide [Fatal]
  - Cardiac arrest [Fatal]
  - Respiratory arrest [Fatal]
  - Product use issue [Unknown]
